FAERS Safety Report 10514265 (Version 1)
Quarter: 2014Q4

REPORT INFORMATION
  Report Type: Spontaneous
  Country: US (occurrence: US)
  Receive Date: 20141013
  Receipt Date: 20141013
  Transmission Date: 20150528
  Serious: No
  Sender: FDA-Public Use
  Company Number: US-BAYER-2014-150733

PATIENT
  Age: 45 Year
  Sex: Female

DRUGS (2)
  1. MIRENA [Suspect]
     Active Substance: LEVONORGESTREL
     Indication: MENORRHAGIA
  2. MIRENA [Suspect]
     Active Substance: LEVONORGESTREL
     Indication: CONTRACEPTION
     Dosage: 20 MCG/24HR, CONT
     Route: 015
     Dates: start: 201011

REACTIONS (6)
  - Procedural pain [None]
  - Polymenorrhoea [None]
  - Menorrhagia [None]
  - Abdominal pain [None]
  - Abdominal distension [None]
  - Oligomenorrhoea [None]

NARRATIVE: CASE EVENT DATE: 2010
